FAERS Safety Report 5551637-8 (Version None)
Quarter: 2007Q4

REPORT INFORMATION
  Report Type: 
  Country: None (occurrence: None)
  Receive Date: 20071212
  Receipt Date: 20071130
  Transmission Date: 20080405
  Serious: Yes (Hospitalization)
  Sender: FDA-Public Use
  Company Number: US-ELI_LILLY_AND_COMPANY-US200711007052

PATIENT
  Age: 58 Year
  Sex: Male

DRUGS (2)
  1. FORTEO [Suspect]
     Dates: start: 20070501
  2. CALCIUM CARBONATE [Concomitant]
     Indication: OSTEOPOROSIS

REACTIONS (1)
  - MYOCARDIAL INFARCTION [None]
